FAERS Safety Report 12743577 (Version 1)
Quarter: 2016Q3

REPORT INFORMATION
  Report Type: Spontaneous
  Country: US (occurrence: US)
  Receive Date: 20160914
  Receipt Date: 20160914
  Transmission Date: 20161109
  Serious: No
  Sender: FDA-Public Use
  Company Number: US-BAYER-2016-173902

PATIENT
  Age: 76 Year
  Sex: Female
  Weight: 61.22 kg

DRUGS (4)
  1. MIRALAX [Suspect]
     Active Substance: POLYETHYLENE GLYCOL 3350
     Indication: GASTROINTESTINAL DISORDER
     Dosage: ONE FULL DOSE 3-4 TIMES A WEEK
  2. MIRALAX [Suspect]
     Active Substance: POLYETHYLENE GLYCOL 3350
     Indication: GASTROINTESTINAL DISORDER
     Dosage: 1 DF, QD
     Route: 048
  3. FIBERCON [Concomitant]
     Active Substance: CALCIUM POLYCARBOPHIL
     Dosage: UNK
  4. MIRALAX [Suspect]
     Active Substance: POLYETHYLENE GLYCOL 3350
     Indication: GASTROINTESTINAL DISORDER
     Dosage: 1 TABLESPOON DAILY
     Route: 048

REACTIONS (4)
  - Flatulence [Recovering/Resolving]
  - Wrong technique in product usage process [None]
  - Product use issue [None]
  - Product use issue [None]

NARRATIVE: CASE EVENT DATE: 2016
